FAERS Safety Report 8961661 (Version 2)
Quarter: 2021Q2

REPORT INFORMATION
  Report Type: Spontaneous
  Country: US (occurrence: US)
  Receive Date: 20121212
  Receipt Date: 20210503
  Transmission Date: 20210717
  Serious: Yes (Other)
  Sender: FDA-Public Use
  Company Number: US-COVIDIEN/TYCO HEALTHCARE/MALLINCKRODT-T201204205

PATIENT
  Age: 66 Year
  Sex: Female

DRUGS (8)
  1. HYDROMORPHONE [Suspect]
     Active Substance: HYDROMORPHONE
     Indication: PRODUCT USED FOR UNKNOWN INDICATION
     Dosage: UNK
     Route: 065
  2. OXYCODONE [Concomitant]
     Active Substance: OXYCODONE
     Indication: NEURALGIA
  3. RESTORIL [Suspect]
     Active Substance: TEMAZEPAM
     Indication: PRODUCT USED FOR UNKNOWN INDICATION
     Dosage: UNK
     Route: 065
  4. FENTANYL. [Suspect]
     Active Substance: FENTANYL
     Indication: MYALGIA
     Dosage: 25 MCG/HR Q 72 HRS
     Route: 062
     Dates: start: 20121117, end: 20121126
  5. FENTANYL. [Suspect]
     Active Substance: FENTANYL
     Indication: NEURALGIA
     Dosage: 50 MCG/HR Q 72 HRS
     Route: 062
     Dates: start: 20121127
  6. OXYCODONE [Concomitant]
     Active Substance: OXYCODONE
     Indication: MYALGIA
     Dosage: 5 MG, UP TO SIX TABS QD
     Route: 048
     Dates: start: 201209
  7. FENTANYL TRANSDERMAL SYSTEM [Suspect]
     Active Substance: FENTANYL
     Indication: MYALGIA
     Dosage: 25 MCG/HR Q 72 HRS
     Route: 062
     Dates: start: 20121117, end: 20121126
  8. FENTANYL TRANSDERMAL SYSTEM [Suspect]
     Active Substance: FENTANYL
     Indication: NEURALGIA
     Dosage: 50 MCG/HR Q 72 HRS
     Route: 062
     Dates: start: 20121127

REACTIONS (10)
  - Rash [Unknown]
  - Burning sensation [Unknown]
  - Oedema peripheral [Not Recovered/Not Resolved]
  - Drug ineffective [Unknown]
  - Vision blurred [Not Recovered/Not Resolved]
  - Throat tightness [Unknown]
  - Pruritus [Unknown]
  - Dyspnoea [Unknown]
  - Pain [Recovering/Resolving]
  - Bronchitis [Unknown]

NARRATIVE: CASE EVENT DATE: 201211
